FAERS Safety Report 8430415-6 (Version None)
Quarter: 2012Q2

REPORT INFORMATION
  Report Type: 
  Country: None (occurrence: None)
  Receive Date: 20120606
  Receipt Date: 20120606
  Transmission Date: 20120825
  Serious: Yes (Hospitalization)
  Sender: FDA-Public Use
  Company Number: None

PATIENT
  Age: 65 Year
  Sex: Male
  Weight: 88.9 kg

DRUGS (1)
  1. NAPROXEN [Suspect]
     Indication: PAIN
     Dosage: 500 MG BID PO
     Route: 048
     Dates: start: 20091005, end: 20120315

REACTIONS (8)
  - GASTROINTESTINAL HAEMORRHAGE [None]
  - FOOD INTOLERANCE [None]
  - DIARRHOEA HAEMORRHAGIC [None]
  - CONDITION AGGRAVATED [None]
  - VOMITING [None]
  - HAEMATEMESIS [None]
  - CHEST PAIN [None]
  - GASTROOESOPHAGEAL REFLUX DISEASE [None]
